FAERS Safety Report 13088989 (Version 1)
Quarter: 2017Q1

REPORT INFORMATION
  Report Type: Spontaneous
  Country: US (occurrence: US)
  Receive Date: 20170105
  Receipt Date: 20170105
  Transmission Date: 20170428
  Serious: No
  Sender: FDA-Public Use
  Company Number: US-PERRIGO-15US013472

PATIENT
  Age: 83 Year
  Sex: Female
  Weight: 57.6 kg

DRUGS (4)
  1. GUAIFENESIN. [Suspect]
     Active Substance: GUAIFENESIN
     Indication: RESPIRATORY TRACT CONGESTION
  2. GUAIFENESIN. [Suspect]
     Active Substance: GUAIFENESIN
     Indication: COUGH
     Dosage: 600 MG, EVERY 12 HOURS
     Route: 048
     Dates: start: 20151226, end: 20151226
  3. ATENOLOL. [Concomitant]
     Active Substance: ATENOLOL
     Indication: HYPERTENSION
     Dosage: UNK
     Route: 065
  4. TRIAMTERENE. [Concomitant]
     Active Substance: TRIAMTERENE
     Indication: HYPERTENSION
     Dosage: UNK
     Route: 065

REACTIONS (1)
  - Condition aggravated [Recovered/Resolved]

NARRATIVE: CASE EVENT DATE: 20151226
